FAERS Safety Report 24862248 (Version 2)
Quarter: 2025Q1

REPORT INFORMATION
  Report Type: Spontaneous
  Country: CO (occurrence: CO)
  Receive Date: 20250120
  Receipt Date: 20250228
  Transmission Date: 20250409
  Serious: No
  Sender: UCB
  Company Number: CO-2025-Q+R-2

PATIENT

DRUGS (1)
  1. NEUPRO [Suspect]
     Active Substance: ROTIGOTINE
     Indication: Product used for unknown indication

REACTIONS (1)
  - Product adhesion issue [Unknown]
